FAERS Safety Report 5379570-5 (Version None)
Quarter: 2007Q3

REPORT INFORMATION
  Report Type: 
  Country: None (occurrence: None)
  Receive Date: 20070703
  Receipt Date: 20070619
  Transmission Date: 20080115
  Serious: Yes (Death, Hospitalization)
  Sender: FDA-Public Use
  Company Number: 2007-00756

PATIENT
  Age: 72 Year
  Sex: Male

DRUGS (21)
  1. VELCADE [Suspect]
     Indication: MULTIPLE MYELOMA
     Dosage: 1.30 MG/M2, INTRAVENOUS
     Route: 042
     Dates: start: 20070213, end: 20070223
  2. ROMIDEPSIN (DEPSIPEPTIDE) [Suspect]
     Indication: MULTIPLE MYELOMA
     Dosage: 12.00 MG, INTRAVENOUS
     Route: 042
     Dates: start: 20070213, end: 20070227
  3. DEXAMETHASONE 0.5MG TAB [Suspect]
     Indication: MULTIPLE MYELOMA
     Dosage: 20.00 MG, ORAL
     Route: 048
     Dates: start: 20070213, end: 20070224
  4. THALIDOMIDE [Concomitant]
  5. ACCUPRIL [Concomitant]
  6. MAGNESIUM ASPARTATE              (MAGNESIUM ASPARTATE) [Concomitant]
  7. NORVASC [Concomitant]
  8. ZOMETA [Concomitant]
  9. SEPTRIN FORTE                 (SULFAMETHOXAZOLE, TRIMETHOPRIM) [Concomitant]
  10. PANAFCORTELONE       (PREDNISOLONE) [Concomitant]
  11. SLOW-K [Concomitant]
  12. PANAMAX            (PARACETAMOL) [Concomitant]
  13. ZYLOPRIM [Concomitant]
  14. AZITHROMYCIN [Concomitant]
  15. VALTREX [Concomitant]
  16. PRAMIN                 (METOCLOPRAMIDE) [Concomitant]
  17. UREMIDE             (FUROSEMIDE) [Concomitant]
  18. NEXIUM [Concomitant]
  19. PIPERACILLIN SODIUM AND TAZOBACTAM SODIUM [Concomitant]
  20. RANIHEXAL              (RANITIDINE HYDROCHLORIDE) [Concomitant]
  21. MAGMIN                 (MAGNESIUM ASPARTATE) [Concomitant]

REACTIONS (4)
  - HYPERCALCAEMIA [None]
  - PARAPROTEINAEMIA [None]
  - PLASMAPHERESIS [None]
  - THROMBOCYTOPENIA [None]
